FAERS Safety Report 4323125-8 (Version None)
Quarter: 2004Q1

REPORT INFORMATION
  Report Type: 
  Country: None (occurrence: None)
  Receive Date: 20040322
  Receipt Date: 20040302
  Transmission Date: 20041129
  Serious: Yes (Hospitalization)
  Sender: FDA-Public Use
  Company Number: 6007734

PATIENT
  Age: 74 Year
  Sex: Male

DRUGS (14)
  1. DIKLOFENAC NM PHARMA (25 MG, TABLETS) (DICLOFENAC) [Suspect]
     Indication: PAIN IN EXTREMITY
     Dosage: 50 MG
     Dates: start: 20031201
  2. XALCOM (TIMOLOL, LATANOPROST) [Suspect]
     Indication: GLAUCOMA
     Dates: start: 20031101
  3. FUROSEMIDE [Concomitant]
  4. SPIRONOLAKTON NM PHARMA (SPIRONOLACTONE) [Concomitant]
  5. NITROGLYCERIN [Concomitant]
  6. AMIODARONE HCL [Concomitant]
  7. PRAVASTATIN [Concomitant]
  8. ISOSORBIDE MONONITRATE [Concomitant]
  9. METOPROLOL (METOPROLOL) [Concomitant]
  10. ENALAPRIL MALEATE [Concomitant]
  11. LANSOPRAZOLE [Concomitant]
  12. LEVOTHYROXINE SODIUM [Concomitant]
  13. METHIMAZOLE [Concomitant]
  14. WARFARIN SODIUM [Concomitant]

REACTIONS (3)
  - ANGINA PECTORIS [None]
  - BRADYCARDIA [None]
  - CARDIAC FAILURE [None]
